FAERS Safety Report 16299699 (Version 1)
Quarter: 2019Q2

REPORT INFORMATION
  Report Type: Spontaneous
  Country: NL (occurrence: NL)
  Receive Date: 20190510
  Receipt Date: 20190510
  Transmission Date: 20190711
  Serious: Yes (Hospitalization)
  Sender: FDA-Public Use
  Company Number: NL-TEVA-2019-NL-1047840

PATIENT
  Age: 84 Year
  Sex: Female

DRUGS (4)
  1. TRIMETHOPRIM TABLET 100MG [Concomitant]
     Active Substance: TRIMETHOPRIM
     Dosage: 1DD1
  2. PARACETAMOL TABLET 500MG [Concomitant]
     Active Substance: ACETAMINOPHEN
     Dosage: 3DD2
  3. CITALOPRAM [Suspect]
     Active Substance: CITALOPRAM HYDROBROMIDE
     Indication: ANXIETY
     Dosage: 1DD1
     Dates: start: 2016, end: 20190417
  4. ALPRAZOLAM TABLET 0,5MG [Concomitant]
     Dosage: 1-3DD1

REACTIONS (1)
  - Hyponatraemia [Recovered/Resolved]

NARRATIVE: CASE EVENT DATE: 20190414
